FAERS Safety Report 5258573-5 (Version None)
Quarter: 2007Q1

REPORT INFORMATION
  Report Type: 
  Country: None (occurrence: None)
  Receive Date: 20070305
  Receipt Date: 20070223
  Transmission Date: 20070707
  Serious: Yes (Hospitalization)
  Sender: FDA-Public Use
  Company Number: 163-20785-07021198

PATIENT
  Age: 53 Year
  Sex: Male

DRUGS (24)
  1. THALOMID [Suspect]
     Indication: MULTIPLE MYELOMA
     Dosage: 200 MG, 1 IN 1 D, ORAL
     Route: 048
     Dates: start: 20061027
  2. DEXAMETHASONE TAB [Suspect]
     Indication: MULTIPLE MYELOMA
     Dosage: 40 MG, 1 IN 12 HR, ORAL
     Route: 048
     Dates: start: 20061027
  3. DOXIL [Suspect]
     Indication: MULTIPLE MYELOMA
     Dosage: 77.6 MG, EVERY 28 DAYS, INTRAVENOUS
     Route: 042
     Dates: start: 20061027, end: 20070123
  4. DULCOLAX [Concomitant]
  5. MILK OF MAGNESIA TAB [Concomitant]
  6. SENOKOT-S (SENOKOT-S) [Concomitant]
  7. PERCOCET [Concomitant]
  8. COUMADIN [Concomitant]
  9. MEGACE [Concomitant]
  10. LASIX [Concomitant]
  11. ZOMETA [Concomitant]
  12. PROCHLORPERAZINE EDISYLATE [Concomitant]
  13. METAXALONE [Concomitant]
  14. MAGNESIUM CITRATE (MAGNESIUM CITRATE) [Concomitant]
  15. CIPRO [Concomitant]
  16. ARANESP [Concomitant]
  17. LORTAB [Concomitant]
  18. BACTRIM [Concomitant]
  19. ACYCLOVIR [Concomitant]
  20. OXYCODONE HCL [Concomitant]
  21. PROTONIX [Concomitant]
  22. SKELAXIN [Concomitant]
  23. COMPAZINE [Concomitant]
  24. MAGNESIUM CITRATE (MAGNESIUM CITRATE) [Concomitant]

REACTIONS (12)
  - ANOREXIA [None]
  - ATELECTASIS [None]
  - BLASTOMYCOSIS [None]
  - CARBUNCLE [None]
  - FATIGUE [None]
  - FLUID OVERLOAD [None]
  - OEDEMA PERIPHERAL [None]
  - PERFORMANCE STATUS DECREASED [None]
  - PULMONARY EMBOLISM [None]
  - PULMONARY INFARCTION [None]
  - PULMONARY MYCOSIS [None]
  - STAPHYLOCOCCAL INFECTION [None]
